FAERS Safety Report 10379795 (Version 1)
Quarter: 2014Q1

REPORT INFORMATION
  Report Type: Spontaneous
  Country: US (occurrence: None)
  Receive Date: 20140306
  Receipt Date: 20140306
  Transmission Date: 20141002
  Serious: Yes (Other)
  Sender: FDA-Public Use
  Company Number: 163-21880-13013382

PATIENT
  Age: 33 Year
  Sex: Female
  Weight: 80.74 kg

DRUGS (2)
  1. REVLIMID (LENALIDOMIDE) (25 MILLIGRAM, CAPSULES) [Suspect]
     Indication: PLASMA CELL MYELOMA
     Dosage: 14 IN 14 D
     Route: 048
     Dates: start: 20121016
  2. VELCADE (BORTEZOMIB) [Concomitant]

REACTIONS (2)
  - Renal failure acute [None]
  - Hypocalcaemia [None]
